FAERS Safety Report 6100641-X (Version None)
Quarter: 2009Q1

REPORT INFORMATION
  Report Type: 
  Country: None (occurrence: None)
  Receive Date: 20090303
  Receipt Date: 20090220
  Transmission Date: 20090719
  Serious: Yes (Hospitalization, Other)
  Sender: FDA-Public Use
  Company Number: GB-PFIZER INC-2009174661

PATIENT

DRUGS (4)
  1. LYRICA [Suspect]
     Indication: PAIN
     Route: 048
     Dates: start: 20090116, end: 20090121
  2. GABAPENTIN [Concomitant]
  3. PARACETAMOL [Concomitant]
     Route: 048
  4. TRAMADOL [Concomitant]
     Route: 048

REACTIONS (2)
  - RASH ERYTHEMATOUS [None]
  - RASH MACULO-PAPULAR [None]
